FAERS Safety Report 21795668 (Version 1)
Quarter: 2022Q4

REPORT INFORMATION
  Report Type: Spontaneous
  Country: ES (occurrence: None)
  Receive Date: 20221229
  Receipt Date: 20221229
  Transmission Date: 20230113
  Serious: Yes (Other)
  Sender: FDA-Public Use
  Company Number: 2022A413176

PATIENT
  Age: 74 Year
  Sex: Female
  Weight: 70 kg

DRUGS (1)
  1. LYNPARZA [Suspect]
     Active Substance: OLAPARIB
     Indication: Homologous recombination deficiency positive advanced ovarian cancer
     Dosage: 300 MG /12H
     Route: 048
     Dates: start: 20210616, end: 20220511

REACTIONS (1)
  - B precursor type acute leukaemia [Unknown]

NARRATIVE: CASE EVENT DATE: 20221102
